FAERS Safety Report 15774017 (Version 1)
Quarter: 2018Q4

REPORT INFORMATION
  Report Type: Report from Study
  Country: None (occurrence: US)
  Receive Date: 20181229
  Receipt Date: 20181229
  Transmission Date: 20190205
  Serious: Yes (Other)
  Sender: FDA-Public Use
  Company Number: US-ABBVIE-18K-163-2496202-00

PATIENT
  Age: 57 Year
  Sex: Female

DRUGS (2)
  1. HUMIRA [Suspect]
     Active Substance: ADALIMUMAB
     Route: 058
     Dates: start: 2018
  2. HUMIRA [Suspect]
     Active Substance: ADALIMUMAB
     Indication: PSORIATIC ARTHROPATHY
     Route: 058
     Dates: start: 20180314, end: 20180723

REACTIONS (16)
  - Wrong technique in product usage process [Unknown]
  - Tendon pain [Unknown]
  - Loss of personal independence in daily activities [Not Recovered/Not Resolved]
  - Scab [Unknown]
  - Mobility decreased [Not Recovered/Not Resolved]
  - Injection site pain [Unknown]
  - Tendon disorder [Unknown]
  - Rotator cuff syndrome [Unknown]
  - Muscle rupture [Unknown]
  - Joint stiffness [Unknown]
  - Anxiety [Unknown]
  - Impaired healing [Unknown]
  - Fall [Unknown]
  - Fatigue [Not Recovered/Not Resolved]
  - Gait disturbance [Not Recovered/Not Resolved]
  - Tooth infection [Unknown]

NARRATIVE: CASE EVENT DATE: 2018
